FAERS Safety Report 7684431-2 (Version None)
Quarter: 2011Q3

REPORT INFORMATION
  Report Type: 
  Country: None (occurrence: None)
  Receive Date: 20110816
  Receipt Date: 20110809
  Transmission Date: 20111222
  Serious: No
  Sender: FDA-Public Use
  Company Number: US-BIOGENIDEC-2010BI030700

PATIENT
  Sex: Female

DRUGS (1)
  1. TYSABRI [Suspect]
     Indication: MULTIPLE SCLEROSIS
     Route: 042
     Dates: start: 20091231

REACTIONS (5)
  - FATIGUE [None]
  - NEURALGIA [None]
  - ORAL HERPES [None]
  - MUSCULAR WEAKNESS [None]
  - PRURITUS [None]
